FAERS Safety Report 5206155-3 (Version None)
Quarter: 2006Q4

REPORT INFORMATION
  Report Type: 
  Country: None (occurrence: None)
  Receive Date: 20061026
  Receipt Date: 20060920
  Transmission Date: 20070319
  Serious: No
  Sender: FDA-Public Use
  Company Number: 2006113894

PATIENT
  Age: 70 Year
  Sex: Female

DRUGS (3)
  1. LYRICA [Suspect]
     Dosage: 150 MG (75 MG, 2 IN 1 D)
  2. NEURONTIN [Suspect]
  3. ANTI-DIABETICS [Concomitant]

REACTIONS (2)
  - FATIGUE [None]
  - MYALGIA [None]
